FAERS Safety Report 25262235 (Version 1)
Quarter: 2025Q2

REPORT INFORMATION
  Report Type: Spontaneous
  Country: US (occurrence: US)
  Receive Date: 20250502
  Receipt Date: 20250502
  Transmission Date: 20250717
  Serious: No
  Sender: GRIFOLS
  Company Number: US-IGSA-BIG0034769

PATIENT
  Sex: Female

DRUGS (8)
  1. GAMUNEX-C [Suspect]
     Active Substance: HUMAN IMMUNOGLOBULIN G
     Indication: Chronic obstructive pulmonary disease
     Dosage: 10 GRAM, Q.WK.
     Route: 058
  2. GAMUNEX-C [Suspect]
     Active Substance: HUMAN IMMUNOGLOBULIN G
     Indication: Off label use
  3. AZELASTINE HYDROCHLORIDE [Concomitant]
     Active Substance: AZELASTINE HYDROCHLORIDE
     Route: 065
  4. BACLOFEN [Concomitant]
     Active Substance: BACLOFEN
     Route: 065
  5. DULOXETINE [Concomitant]
     Active Substance: DULOXETINE
     Route: 065
  6. LEVOTHYROXINE [Concomitant]
     Active Substance: LEVOTHYROXINE
     Route: 048
  7. PREGABALIN [Concomitant]
     Active Substance: PREGABALIN
     Route: 048
  8. SOOLANTRA [Concomitant]
     Active Substance: IVERMECTIN
     Route: 061

REACTIONS (1)
  - Dermatitis allergic [Unknown]
